FAERS Safety Report 20169677 (Version 2)
Quarter: 2022Q1

REPORT INFORMATION
  Report Type: Spontaneous
  Country: IR (occurrence: IR)
  Receive Date: 20211210
  Receipt Date: 20220119
  Transmission Date: 20220424
  Serious: Yes (Life-Threatening, Hospitalization, Other)
  Sender: FDA-Public Use
  Company Number: IR-MACLEODS PHARMACEUTICALS US LTD-MAC2021033649

PATIENT

DRUGS (4)
  1. QUETIAPINE [Suspect]
     Active Substance: QUETIAPINE
     Indication: Product used for unknown indication
     Dosage: UNK (MATERNAL DOSE: UNKNOWN), EXPOSED AROUND 36 TO 37 WEEKS OF GESTATION
     Route: 064
  2. RISPERIDONE [Suspect]
     Active Substance: RISPERIDONE
     Indication: Product used for unknown indication
     Dosage: UNK, EXPOSED AROUND 36 TO 37 WEEKS OF GESTATION
     Route: 064
  3. SERTRALINE [Concomitant]
     Active Substance: SERTRALINE HYDROCHLORIDE
     Indication: Product used for unknown indication
     Dosage: UNK
     Route: 065
  4. CLONAZEPAM [Concomitant]
     Active Substance: CLONAZEPAM
     Indication: Product used for unknown indication
     Dosage: UNK
     Route: 065

REACTIONS (20)
  - Neonatal seizure [Recovered/Resolved]
  - Atrial septal defect [Recovered/Resolved]
  - Cryptorchism [Recovered/Resolved]
  - Hydronephrosis [Recovered/Resolved]
  - Patent ductus arteriosus [Recovered/Resolved]
  - Tricuspid valve incompetence [Recovered/Resolved]
  - Meconium aspiration syndrome [Recovered/Resolved]
  - Paraesthesia [Recovering/Resolving]
  - Blood lactic acid increased [Recovered/Resolved]
  - Ammonia increased [Recovered/Resolved]
  - Jaundice [Recovered/Resolved]
  - Blood gases abnormal [Recovered/Resolved]
  - Congenital choroid plexus cyst [Recovered/Resolved]
  - Intraventricular haemorrhage neonatal [Recovered/Resolved]
  - Central nervous system lesion [Recovered/Resolved]
  - Asphyxia [Recovered/Resolved]
  - Apnoea [Recovered/Resolved]
  - Hypoxia [Recovered/Resolved]
  - Hypotonia neonatal [Not Recovered/Not Resolved]
  - Foetal exposure during pregnancy [Unknown]
